FAERS Safety Report 8635916 (Version 2)
Quarter: 2014Q1

REPORT INFORMATION
  Report Type: Spontaneous
  Country: US (occurrence: US)
  Receive Date: 20120626
  Receipt Date: 20140115
  Transmission Date: 20141002
  Serious: Yes (Other)
  Sender: FDA-Public Use
  Company Number: US-ROCHE-784525

PATIENT
  Age: 35 Year
  Sex: Female
  Weight: 97.61 kg

DRUGS (7)
  1. ACCUTANE [Suspect]
     Indication: ACNE
     Route: 048
     Dates: start: 19980203, end: 199806
  2. ACCUTANE [Suspect]
     Route: 048
     Dates: start: 19990611, end: 199911
  3. ACCUTANE [Suspect]
     Route: 048
     Dates: start: 20020111, end: 200205
  4. ACCUTANE [Suspect]
     Route: 048
     Dates: start: 200906, end: 200911
  5. TRIAMCINOLONE [Concomitant]
  6. NOVACET [Concomitant]
  7. LIDEX [Concomitant]

REACTIONS (9)
  - Colitis ulcerative [Unknown]
  - Inflammatory bowel disease [Unknown]
  - Stress [Unknown]
  - Depression [Unknown]
  - Irritable bowel syndrome [Unknown]
  - Lip dry [Unknown]
  - Erythema [Unknown]
  - Eczema [Unknown]
  - Rash [Unknown]
